FAERS Safety Report 13959369 (Version 1)
Quarter: 2017Q3

REPORT INFORMATION
  Report Type: Spontaneous
  Country: GB (occurrence: GB)
  Receive Date: 20170911
  Receipt Date: 20170911
  Transmission Date: 20171128
  Serious: Yes (Other)
  Sender: FDA-Public Use
  Company Number: GB-SA-2017SA164884

PATIENT
  Age: 60 Year
  Sex: Female

DRUGS (1)
  1. CEREZYME [Suspect]
     Active Substance: IMIGLUCERASE
     Dosage: DOSE:4000 UNIT(S)
     Route: 041
     Dates: end: 20170818

REACTIONS (4)
  - Nasopharyngitis [Unknown]
  - Nausea [Unknown]
  - Lower respiratory tract infection [Unknown]
  - Decreased appetite [Unknown]
